FAERS Safety Report 8704738 (Version 4)
Quarter: 2014Q2

REPORT INFORMATION
  Report Type: Report from Study
  Country: US (occurrence: US)
  Receive Date: 20120803
  Receipt Date: 20140617
  Transmission Date: 20141212
  Serious: Yes (Life-Threatening, Hospitalization)
  Sender: FDA-Public Use
  Company Number: US-ACTELION-A-US2012-69371

PATIENT
  Age: 67 Year
  Sex: Female

DRUGS (25)
  1. TRACLEER [Suspect]
     Indication: PULMONARY ARTERIAL HYPERTENSION
     Dosage: 125 MG, BID
     Route: 048
     Dates: start: 2008, end: 201207
  2. TRACLEER [Suspect]
     Dosage: 62.5 MG, BID
     Route: 048
     Dates: start: 201305, end: 201306
  3. TRACLEER [Suspect]
     Dosage: 125 MG, BID
     Route: 048
     Dates: start: 201306, end: 201405
  4. TRACLEER [Suspect]
     Dosage: 62.5 MG, BID
     Route: 048
     Dates: start: 2008, end: 2008
  5. PROAIR [Concomitant]
     Dosage: UNK, BID
  6. VERAMYST [Concomitant]
     Dosage: 27.5 MCG, BID
  7. VITAMIN B12 [Concomitant]
     Dosage: 1000 MCG/ML, Q1MONTH
     Route: 030
     Dates: start: 1998
  8. POTASSIUM [Concomitant]
     Dosage: 10 MEQ, QD
     Dates: start: 201304
  9. WARFARIN [Concomitant]
     Dosage: 5 MG, QD
     Dates: start: 2001
  10. CLARITIN [Concomitant]
     Dosage: 10 MG, BID
     Dates: start: 2013
  11. TIZANIDINE [Concomitant]
     Dosage: 4 MG, QD
     Dates: start: 2008
  12. PRIMIDONE [Concomitant]
     Dosage: 50 MG, BID
  13. PANTOPRAZOLE [Concomitant]
     Dosage: 40 MG, QD
     Dates: start: 201306
  14. FLEXERIL [Concomitant]
     Dosage: 10 MG, PRN
     Dates: start: 2012
  15. LASIX [Concomitant]
     Dosage: 40 MG, BID
     Dates: start: 2011
  16. LEXAPRO [Concomitant]
     Dosage: 20 MG, QD
     Dates: start: 2012
  17. KLONOPIN [Concomitant]
     Dosage: 1 MG, BID
     Dates: start: 2003
  18. KLONOPIN [Concomitant]
     Dosage: 2 MG, QPM
  19. COREG [Concomitant]
     Dosage: 6.25 MG, BID
     Dates: start: 2012
  20. BUMETANIDE [Concomitant]
     Dosage: 1 MG, QD
     Dates: start: 2012
  21. RANITIDINE [Concomitant]
     Dosage: 150 MG, BID
  22. HYDROCODONE [Concomitant]
     Dosage: 5/500 MG, PRN
  23. DICYCLOMINE [Concomitant]
     Dosage: 10 MG, BID
  24. TYLENOL [Concomitant]
     Dosage: 1000 MG, PRN
  25. ALBUTEROL [Concomitant]
     Dosage: UNK

REACTIONS (14)
  - Pneumothorax [Recovered/Resolved]
  - Dyspnoea [Recovered/Resolved]
  - Thoracostomy [Unknown]
  - Partial lung resection [Recovered/Resolved]
  - Blood pressure decreased [Recovered/Resolved]
  - Loss of consciousness [Recovered/Resolved]
  - Abdominal pain [Recovering/Resolving]
  - Abdominal distension [Recovering/Resolving]
  - Cough [Unknown]
  - Peripheral swelling [Unknown]
  - Asthenia [Not Recovered/Not Resolved]
  - Irritable bowel syndrome [Recovering/Resolving]
  - Large intestinal polypectomy [Recovered/Resolved]
  - Chest pain [Not Recovered/Not Resolved]
